FAERS Safety Report 5776677-5 (Version None)
Quarter: 2008Q2

REPORT INFORMATION
  Report Type: 
  Country: None (occurrence: None)
  Receive Date: 20080618
  Receipt Date: 20080602
  Transmission Date: 20081010
  Serious: No
  Sender: FDA-Public Use
  Company Number: NL-BAYER-200813475GPV

PATIENT
  Sex: Male

DRUGS (3)
  1. AVELOX [Suspect]
     Indication: OTITIS MEDIA ACUTE
     Dosage: TOTAL DAILY DOSE: 400 MG  UNIT DOSE: 400 MG
     Route: 048
  2. KLACID [Concomitant]
     Indication: OTITIS MEDIA ACUTE
     Dosage: TOTAL DAILY DOSE: 500 MG  UNIT DOSE: 500 MG
     Route: 048
  3. NASONEX [Concomitant]
     Indication: OTITIS MEDIA ACUTE
     Route: 045

REACTIONS (1)
  - DERMATITIS BULLOUS [None]
